FAERS Safety Report 6291460-2 (Version None)
Quarter: 2009Q3

REPORT INFORMATION
  Report Type: 
  Country: None (occurrence: None)
  Receive Date: 20090730
  Receipt Date: 20090717
  Transmission Date: 20100115
  Serious: Yes (Other)
  Sender: FDA-Public Use
  Company Number: DE-MYLANLABS-2009S1012792

PATIENT
  Age: 85 Year
  Sex: Male
  Weight: 80 kg

DRUGS (5)
  1. FELODIPIN DURA [Suspect]
     Indication: ACCIDENTAL EXPOSURE
     Route: 048
     Dates: start: 20090717, end: 20090717
  2. BISOPROLOL [Suspect]
     Indication: ACCIDENTAL EXPOSURE
     Route: 048
     Dates: start: 20090717, end: 20090717
  3. FOSINOPRIL SODIUM [Suspect]
     Indication: ACCIDENTAL EXPOSURE
     Route: 048
     Dates: start: 20090717, end: 20090717
  4. TORSEMIDE [Suspect]
     Indication: ACCIDENTAL EXPOSURE
     Route: 048
     Dates: start: 20090717, end: 20090717
  5. GLIBENCLAMIDE [Suspect]
     Indication: ACCIDENTAL EXPOSURE
     Route: 048
     Dates: start: 20090717, end: 20090717

REACTIONS (3)
  - ACCIDENTAL EXPOSURE [None]
  - CARDIOVASCULAR INSUFFICIENCY [None]
  - SOMNOLENCE [None]
